FAERS Safety Report 21405501 (Version 1)
Quarter: 2022Q4

REPORT INFORMATION
  Report Type: Spontaneous
  Country: CO (occurrence: CO)
  Receive Date: 20221004
  Receipt Date: 20221004
  Transmission Date: 20230112
  Serious: Yes (Other)
  Sender: FDA-Public Use
  Company Number: CO-BAXTER-2022BAX020879

PATIENT
  Age: 6 Month
  Sex: Male

DRUGS (2)
  1. SODIUM CHLORIDE [Suspect]
     Active Substance: SODIUM CHLORIDE
     Indication: Medication dilution
     Dosage: 320 MILLIGRAMS (MG) OF AMPICILLIN SULBACTAM DILUTED IN 100 MILLILITERS (ML) OF 0.9% SODIUM CHLORIDE
     Route: 042
  2. AMPICILLIN SODIUM\SULBACTAM SODIUM [Suspect]
     Active Substance: AMPICILLIN SODIUM\SULBACTAM SODIUM
     Indication: Antibiotic therapy
     Dosage: 320 MILLIGRAMS (MG)
     Route: 042

REACTIONS (2)
  - Cough [Unknown]
  - Cyanosis [Unknown]
